FAERS Safety Report 6907735-7 (Version None)
Quarter: 2010Q3

REPORT INFORMATION
  Report Type: 
  Country: None (occurrence: None)
  Receive Date: 20100709
  Receipt Date: 20091123
  Transmission Date: 20110219
  Serious: Yes (Hospitalization)
  Sender: FDA-Public Use
  Company Number: 2009110041

PATIENT
  Age: 36 Year
  Sex: Male
  Weight: 117.9352 kg

DRUGS (3)
  1. SOMA [Suspect]
     Indication: BACK PAIN
     Dosage: Q1D (350 MG, 4 IN 1 D), ORAL
     Route: 048
     Dates: start: 20091113, end: 20091115
  2. TRAMADOL HCL [Suspect]
     Indication: BACK PAIN
     Dosage: 360 MG (60 MG, 1 IN 4 HR), ORAL
     Route: 048
     Dates: start: 20091101, end: 20091101
  3. CYMBALTA (DULOXETINE HC1) [Concomitant]

REACTIONS (6)
  - AMNESIA [None]
  - CONTUSION [None]
  - DIZZINESS [None]
  - FALL [None]
  - GRAND MAL CONVULSION [None]
  - PERIORBITAL HAEMATOMA [None]
